FAERS Safety Report 4406513-0 (Version None)
Quarter: 2004Q3

REPORT INFORMATION
  Report Type: 
  Country: None (occurrence: None)
  Receive Date: 20040716
  Receipt Date: 20040706
  Transmission Date: 20050211
  Serious: Yes (Hospitalization)
  Sender: FDA-Public Use
  Company Number: K200400993

PATIENT
  Age: 37 Year
  Sex: Female

DRUGS (4)
  1. NORDETTE-21 [Suspect]
     Indication: ORAL CONTRACEPTION
     Dosage: 1 TAB, QD, ORAL
     Route: 048
     Dates: start: 20010601
  2. NORGESTREL AND ETHINYL ESTRADIOL [Suspect]
     Indication: ORAL CONTRACEPTION
     Dosage: 1 TAB, QD
     Dates: start: 20010601
  3. CLORANA (HYDROCHLOROTHIAZIDE) [Concomitant]
  4. PROPRANOLOL [Concomitant]

REACTIONS (2)
  - CHOLELITHIASIS [None]
  - METRORRHAGIA [None]
